FAERS Safety Report 5954004-8 (Version None)
Quarter: 2008Q4

REPORT INFORMATION
  Report Type: 
  Country: None (occurrence: None)
  Receive Date: 20081114
  Receipt Date: 20081104
  Transmission Date: 20090506
  Serious: Yes (Hospitalization)
  Sender: FDA-Public Use
  Company Number: US-AMGEN-US317498

PATIENT
  Sex: Female
  Weight: 39 kg

DRUGS (12)
  1. ENBREL [Suspect]
     Indication: RHEUMATOID ARTHRITIS
     Route: 058
     Dates: start: 20060120, end: 20060224
  2. TUMS [Concomitant]
     Route: 048
     Dates: start: 20060120, end: 20060428
  3. TUMS [Concomitant]
     Route: 048
     Dates: start: 20060815, end: 20060901
  4. TYLENOL [Concomitant]
     Route: 048
     Dates: start: 20060210, end: 20060429
  5. PREDNISONE TAB [Concomitant]
     Route: 048
     Dates: start: 20060120, end: 20060423
  6. PREDNISONE TAB [Concomitant]
     Route: 048
     Dates: start: 20060424, end: 20060514
  7. PREDNISONE TAB [Concomitant]
     Route: 048
     Dates: start: 20060515, end: 20060910
  8. AMOXICILLIN [Concomitant]
     Route: 048
     Dates: start: 20060501, end: 20060507
  9. ERYTHROMYCIN [Concomitant]
     Route: 048
     Dates: start: 20060508, end: 20060514
  10. ANTIBIOTIC NOS [Concomitant]
     Route: 048
     Dates: start: 20060515, end: 20060522
  11. ROBITUSSIN [Concomitant]
     Route: 048
     Dates: start: 20060508, end: 20060514
  12. TYLENOL COLD AND FLU [Concomitant]
     Route: 048
     Dates: start: 20060515, end: 20060530

REACTIONS (2)
  - PREMATURE LABOUR [None]
  - PREMATURE RUPTURE OF MEMBRANES [None]
